FAERS Safety Report 15578447 (Version 2)
Quarter: 2025Q3

REPORT INFORMATION
  Report Type: Spontaneous
  Country: EU (occurrence: EU)
  Receive Date: 20181102
  Receipt Date: 20250702
  Transmission Date: 20251021
  Serious: Yes (Death, Hospitalization, Other)
  Sender: AUROBINDO
  Company Number: EU-AUROBINDO-AUR-APL-2018-053362

PATIENT
  Age: 27 Year
  Sex: Male

DRUGS (13)
  1. TERBINAFINE [Suspect]
     Active Substance: TERBINAFINE
     Indication: Scedosporium infection
     Dosage: 250 MG, QD
     Route: 065
  2. VORICONAZOLE [Suspect]
     Active Substance: VORICONAZOLE
     Indication: Scedosporium infection
     Dosage: 200 MG, BID
     Route: 042
  3. VORICONAZOLE [Suspect]
     Active Substance: VORICONAZOLE
     Indication: Infection prophylaxis
     Route: 051
  4. VORICONAZOLE [Suspect]
     Active Substance: VORICONAZOLE
     Dosage: 40 MG, TID NEBULIZATION (VRC 200MG DILUTED IN 20CC OF STERILE WATER AND REMOVE 4CC FROM THE MIXTURE)
     Route: 055
  5. TACROLIMUS [Suspect]
     Active Substance: TACROLIMUS
     Indication: Immunosuppressant drug therapy
     Route: 065
  6. MILTEFOSINE [Suspect]
     Active Substance: MILTEFOSINE
     Indication: Antifungal treatment
     Dosage: 50 MG, BID
     Route: 065
  7. POSACONAZOLE [Suspect]
     Active Substance: POSACONAZOLE
     Indication: Antifungal treatment
     Dosage: 200 MG, QID
     Route: 048
  8. POSACONAZOLE [Suspect]
     Active Substance: POSACONAZOLE
     Dosage: 300 MG, QD
     Route: 042
  9. CASPOFUNGIN [Suspect]
     Active Substance: CASPOFUNGIN
     Indication: Scedosporium infection
     Dosage: 50 MG, QD
     Route: 065
  10. PREDNISONE [Suspect]
     Active Substance: PREDNISONE
     Indication: Immunosuppressant drug therapy
     Route: 065
  11. AMPHOTERICIN B [Suspect]
     Active Substance: AMPHOTERICIN B
     Indication: Product used for unknown indication
     Dosage: 25 MG QD, NEBULIZATION (L-AMB 50MG DILUTED IN 12CC OF STERILE WATER AND REMOVE 6CC FROM THE MIXTURE)
     Route: 055
  12. AMPHOTERICIN B [Suspect]
     Active Substance: AMPHOTERICIN B
     Indication: Infection prophylaxis
     Dosage: 350 MG, QD
     Route: 042
  13. ANIDULAFUNGIN [Suspect]
     Active Substance: ANIDULAFUNGIN
     Indication: Antifungal treatment
     Dosage: 100 MG, QD
     Route: 065

REACTIONS (11)
  - Multiple organ dysfunction syndrome [Fatal]
  - Infectious pleural effusion [Unknown]
  - Lung consolidation [Unknown]
  - Hepatic enzyme increased [Unknown]
  - Respiratory failure [Unknown]
  - Drug resistance [Unknown]
  - Dyspnoea [Unknown]
  - Cardiac valve vegetation [Unknown]
  - Pyrexia [Unknown]
  - Renal failure [Unknown]
  - Scedosporium infection [Not Recovered/Not Resolved]
